FAERS Safety Report 23914222 (Version 1)
Quarter: 2024Q2

REPORT INFORMATION
  Report Type: Other
  Country: CA (occurrence: None)
  Receive Date: 20240529
  Receipt Date: 20240529
  Transmission Date: 20240716
  Serious: No
  Sender: FDA-Public Use
  Company Number: CA-ROCHE-3572070

PATIENT
  Sex: Female

DRUGS (1)
  1. OCREVUS [Suspect]
     Active Substance: OCRELIZUMAB
     Indication: Relapsing-remitting multiple sclerosis
     Dosage: DAY 0, 14 THEN 600 MG Q6M, 300 MG AT DAY 0 AND 14, THEN 600 MG EVERY 6 MONTH?SCHEDULED INFUSION: 03/
     Route: 042
     Dates: start: 20201016

REACTIONS (1)
  - Herpes virus infection [Unknown]
